FAERS Safety Report 8262267-1 (Version None)
Quarter: 2012Q2

REPORT INFORMATION
  Report Type: 
  Country: None (occurrence: None)
  Receive Date: 20120405
  Receipt Date: 20120327
  Transmission Date: 20120825
  Serious: Yes (Other)
  Sender: FDA-Public Use
  Company Number: US-ELI_LILLY_AND_COMPANY-US201203008963

PATIENT
  Age: 55 Year
  Sex: Male

DRUGS (2)
  1. EFFIENT [Suspect]
     Indication: ACUTE MYOCARDIAL INFARCTION
     Dosage: 60 MG, UNK
     Dates: start: 20120321
  2. EFFIENT [Suspect]
     Dosage: 10 MG, UNK
     Route: 048
     Dates: end: 20120328

REACTIONS (5)
  - THROMBOSIS IN DEVICE [None]
  - HEPATIC CIRRHOSIS [None]
  - PLATELET COUNT DECREASED [None]
  - COLON CANCER [None]
  - VARICES OESOPHAGEAL [None]
